FAERS Safety Report 8965878 (Version 1)
Quarter: 2012Q4

REPORT INFORMATION
  Report Type: 
  Country: TW (occurrence: None)
  Receive Date: 20121204
  Receipt Date: 20121204
  Transmission Date: 20130627
  Serious: Yes (Hospitalization)
  Sender: FDA-Public Use
  Company Number: VALP20120012

PATIENT
  Age: 47 Year
  Sex: Male
  Weight: 48.5 kg

DRUGS (1)
  1. VALPROIC ACID [Suspect]
     Indication: GRAND MAL CONVULSION
     Route: 048
     Dates: start: 201209, end: 201209

REACTIONS (2)
  - Convulsion [None]
  - Convulsion [None]
